FAERS Safety Report 24159823 (Version 1)
Quarter: 2024Q3

REPORT INFORMATION
  Report Type: Report from Study
  Country: US (occurrence: US)
  Receive Date: 20240731
  Receipt Date: 20240731
  Transmission Date: 20241016
  Serious: Yes (Other)
  Sender: BEIGENE
  Company Number: US-BEIGENE-BGN-2023-015087

PATIENT

DRUGS (3)
  1. BRUKINSA [Suspect]
     Active Substance: ZANUBRUTINIB
     Indication: Waldenstrom^s macroglobulinaemia
     Dosage: 80 MILLIGRAM, BID
     Route: 048
     Dates: start: 20231125
  2. BRUKINSA [Suspect]
     Active Substance: ZANUBRUTINIB
     Dosage: 160 MILLIGRAM, BID
     Route: 048
     Dates: start: 20240129
  3. BRUKINSA [Suspect]
     Active Substance: ZANUBRUTINIB
     Dosage: 160 MILLIGRAM, BID
     Route: 048
     Dates: start: 20240129

REACTIONS (15)
  - Immunodeficiency common variable [Unknown]
  - Nephrogenic anaemia [Unknown]
  - Chronic kidney disease [Unknown]
  - Demyelinating polyneuropathy [Unknown]
  - Paraneoplastic syndrome [Unknown]
  - Pancytopenia [Recovering/Resolving]
  - Myalgia [Unknown]
  - Arthralgia [Unknown]
  - Bone contusion [Unknown]
  - Vomiting [Recovered/Resolved]
  - Sleep disorder [Unknown]
  - Laboratory test abnormal [Unknown]
  - Bite [Unknown]
  - Rash [Recovering/Resolving]
  - Eosinophilic cellulitis [Unknown]
